FAERS Safety Report 5796160-0 (Version None)
Quarter: 2008Q3

REPORT INFORMATION
  Report Type: 
  Country: None (occurrence: None)
  Receive Date: 20080701
  Receipt Date: 20080617
  Transmission Date: 20090109
  Serious: Yes (Death, Hospitalization)
  Sender: FDA-Public Use
  Company Number: ES-ELI_LILLY_AND_COMPANY-ES200806004358

PATIENT
  Sex: Female

DRUGS (7)
  1. FORTEO [Suspect]
     Indication: OSTEOPOROSIS
     Dosage: 20 UG, UNKNOWN
     Route: 058
     Dates: start: 20080508
  2. SUTRIL [Concomitant]
  3. ASPIRIN [Concomitant]
  4. OMEPRAZOLE [Concomitant]
  5. PLANTABEN [Concomitant]
  6. FORADIL [Concomitant]
  7. ESPRADEN [Concomitant]

REACTIONS (2)
  - CLOSTRIDIUM BACTERAEMIA [None]
  - RESPIRATORY DISORDER [None]
